FAERS Safety Report 8939677 (Version 6)
Quarter: 2013Q1

REPORT INFORMATION
  Report Type: Report from Study
  Country: DE (occurrence: DE)
  Receive Date: 20121130
  Receipt Date: 20130125
  Transmission Date: 20140127
  Serious: Yes (Death, Hospitalization)
  Sender: FDA-Public Use
  Company Number: PHHO2012DE017065

PATIENT
  Age: 68 Year
  Sex: Male
  Weight: 72.8 kg

DRUGS (15)
  1. ASS SANDOZ [Suspect]
     Indication: CORONARY ARTERY DISEASE
     Dosage: 100 MG, QD
     Route: 048
  2. BLINDED NO TREATMENT RECEIVED [Suspect]
     Indication: CARDIAC FAILURE ACUTE
     Dosage: CODE NOT BROKEN
     Route: 042
     Dates: start: 20121018, end: 20121019
  3. BLINDED PLACEBO [Suspect]
     Indication: CARDIAC FAILURE ACUTE
     Dosage: CODE NOT BROKEN
     Route: 042
     Dates: start: 20121018, end: 20121019
  4. BLINDED RLX030 [Suspect]
     Indication: CARDIAC FAILURE ACUTE
     Dosage: CODE NOT BROKEN
     Route: 042
     Dates: start: 20121018, end: 20121019
  5. BELOC ZOK [Concomitant]
     Indication: CORONARY ARTERY DISEASE
     Dosage: 47 MG, BID
     Route: 048
  6. BELOC ZOK [Concomitant]
     Indication: ATRIAL FIBRILLATION
  7. SORTIS [Concomitant]
     Indication: CORONARY ARTERY DISEASE
     Dosage: 40 MG, UNK
     Route: 048
  8. RAMIPRIL [Concomitant]
     Indication: CARDIAC FAILURE
     Dosage: 2.5 MG, BID
     Route: 048
  9. TOREM [Concomitant]
     Indication: CARDIAC FAILURE
     Dosage: 5 MG, UNK
     Route: 048
  10. TOREM [Concomitant]
     Dosage: 10 1-0-1/2
     Route: 048
  11. SPIRONOLACTONE [Concomitant]
     Indication: CARDIAC FAILURE
     Dosage: 50 MG, UNK
     Route: 048
  12. PANTOZOL [Concomitant]
     Dosage: 40 1-0-0
  13. ACTRAPID BEEF [Concomitant]
     Dosage: ACCORDING TO BLOOD GLUCOSE
  14. KALINOR                                 /TUR/ [Concomitant]
     Dosage: ACCORDING TO POTASSIUM VALUE
  15. LEVEMIR [Concomitant]

REACTIONS (2)
  - Anaemia [Fatal]
  - Acute myeloid leukaemia [Fatal]
